FAERS Safety Report 8010128-5 (Version None)
Quarter: 2011Q4

REPORT INFORMATION
  Report Type: 
  Country: None (occurrence: None)
  Receive Date: 20111228
  Receipt Date: 20111219
  Transmission Date: 20120403
  Serious: Yes (Other)
  Sender: FDA-Public Use
  Company Number: FR-UCBSA-048084

PATIENT
  Sex: Female

DRUGS (1)
  1. CIMZIA [Suspect]
     Indication: RHEUMATOID ARTHRITIS
     Dosage: 200 MG IN THE MORNING AND 200 MG AT NIGHT - ONLY ONE INJECTION OF 400MG
     Route: 058
     Dates: start: 20110101, end: 20110101

REACTIONS (2)
  - TOXIC SKIN ERUPTION [None]
  - INAPPROPRIATE SCHEDULE OF DRUG ADMINISTRATION [None]
